FAERS Safety Report 6068502-2 (Version None)
Quarter: 2009Q1

REPORT INFORMATION
  Report Type: 
  Country: None (occurrence: None)
  Receive Date: 20090206
  Receipt Date: 20090127
  Transmission Date: 20090719
  Serious: Yes (Other)
  Sender: FDA-Public Use
  Company Number: JP-PFIZER INC-2009162545

PATIENT

DRUGS (6)
  1. NORVASC [Suspect]
     Dosage: 10 MG, 2X/DAY
     Route: 048
     Dates: start: 20000101
  2. NORVASC [Suspect]
     Dosage: 5 MG, 1X/DAY
     Route: 048
  3. NORVASC [Suspect]
     Dosage: 7.5 MG, 1X/DAY
     Route: 048
  4. BLOPRESS [Concomitant]
  5. MEVALOTIN [Concomitant]
  6. DIAZEPAM [Concomitant]

REACTIONS (1)
  - COLONIC POLYP [None]
